FAERS Safety Report 16647096 (Version 2)
Quarter: 2019Q3

REPORT INFORMATION
  Report Type: Report from Study
  Country: LT (occurrence: LT)
  Receive Date: 20190730
  Receipt Date: 20190815
  Transmission Date: 20191004
  Serious: Yes (Death, Life-Threatening, Hospitalization)
  Sender: FDA-Public Use
  Company Number: LT-PFIZER INC-2019321618

PATIENT
  Age: 58 Year
  Sex: Male
  Weight: 77 kg

DRUGS (3)
  1. CYTOSTAR [Concomitant]
     Active Substance: CYTARABINE
     Indication: ACUTE MYELOID LEUKAEMIA REFRACTORY
     Dosage: 37 MG, 1X/DAY, I-V
     Route: 042
     Dates: start: 20190708, end: 20190719
  2. PURINETHOL [Concomitant]
     Active Substance: MERCAPTOPURINE
     Indication: LEUKOCYTOSIS
     Dosage: 50 MG, 1X/DAY, 1 TABLET
     Route: 048
     Dates: start: 20190717, end: 20190720
  3. GLASDEGIB [Suspect]
     Active Substance: GLASDEGIB
     Indication: ACUTE MYELOID LEUKAEMIA REFRACTORY
     Dosage: 100 MG, 1X/DAY, TABLET
     Route: 048
     Dates: start: 20190708, end: 20190720

REACTIONS (3)
  - Pneumonia [Not Recovered/Not Resolved]
  - Septic shock [Fatal]
  - Sepsis [Fatal]

NARRATIVE: CASE EVENT DATE: 20190720
